FAERS Safety Report 20130559 (Version 1)
Quarter: 2021Q4

REPORT INFORMATION
  Report Type: Spontaneous
  Country: MY (occurrence: MY)
  Receive Date: 20211130
  Receipt Date: 20211130
  Transmission Date: 20220303
  Serious: Yes (Death, Other)
  Sender: FDA-Public Use
  Company Number: None

PATIENT
  Age: 4 Decade
  Sex: Female

DRUGS (17)
  1. ETOPOSIDE [Suspect]
     Active Substance: ETOPOSIDE
     Indication: Hodgkin^s disease nodular sclerosis
     Dosage: UNK, CYCLE AS PER THE ICE REGIMEN FOR 3 CYCLES
     Route: 065
  2. GEMCITABINE [Suspect]
     Active Substance: GEMCITABINE
     Indication: Hodgkin^s disease nodular sclerosis
     Dosage: UNK, CYCLE AS PER THE GDC REGIMEN FOR 5 CYCLES
     Route: 065
  3. ADRIAMYCIN [Suspect]
     Active Substance: DOXORUBICIN HYDROCHLORIDE
     Indication: Hodgkin^s disease nodular sclerosis
     Dosage: UNK UNK, CYCLE AS PER THE ABVD REGIMEN FOR 1 CYCLE
     Route: 065
  4. ADRIAMYCIN [Suspect]
     Active Substance: DOXORUBICIN HYDROCHLORIDE
     Dosage: UNK UNK, CYCLE AS PER THE AVD REGIMEN FOR 4 CYCLES
     Route: 065
  5. BLEOMYCIN [Suspect]
     Active Substance: BLEOMYCIN SULFATE
     Indication: Hodgkin^s disease nodular sclerosis
     Dosage: UNK UNK, CYCLE AS PER THE ABVD REGIMEN FOR 1 CYCLE
     Route: 065
  6. VINBLASTINE [Suspect]
     Active Substance: VINBLASTINE
     Indication: Hodgkin^s disease nodular sclerosis
     Dosage: UNK UNK, CYCLE AS PER THE ABVD REGIMEN FOR 1 CYCLE
     Route: 065
  7. VINBLASTINE [Suspect]
     Active Substance: VINBLASTINE
     Dosage: UNK UNK, CYCLE AS PER THE AVD REGIMEN FOR 4 CYCLES
     Route: 065
  8. DACARBAZINE [Suspect]
     Active Substance: DACARBAZINE
     Indication: Hodgkin^s disease nodular sclerosis
     Dosage: UNK UNK, CYCLE AS PER THE ABVD REGIMEN FOR 1 CYCLE
     Route: 065
  9. DACARBAZINE [Suspect]
     Active Substance: DACARBAZINE
     Dosage: UNK UNK, CYCLE AS PER THE AVD REGIMEN FOR 4 CYCLES
     Route: 065
  10. IFOSFAMIDE [Suspect]
     Active Substance: IFOSFAMIDE
     Indication: Hodgkin^s disease nodular sclerosis
     Dosage: UNK UNK, CYCLE AS PER THE ICE REGIMEN FOR 3 CYCLES
     Route: 065
  11. CARBOPLATIN [Suspect]
     Active Substance: CARBOPLATIN
     Indication: Hodgkin^s disease nodular sclerosis
     Dosage: UNK UNK, CYCLE AS PER THE ICE REGIMEN FOR 3 CYCLES
     Route: 065
  12. CARBOPLATIN [Suspect]
     Active Substance: CARBOPLATIN
     Dosage: UNK UNK, CYCLE AS PER THE DHAC REGIMEN FOR 3 CYCLES
     Route: 065
  13. DEXAMETHASONE [Suspect]
     Active Substance: DEXAMETHASONE
     Indication: Hodgkin^s disease nodular sclerosis
     Dosage: UNK UNK, CYCLE AS PER THE GDC REGIMEN FOR 5 CYCLES
     Route: 065
  14. DEXAMETHASONE [Suspect]
     Active Substance: DEXAMETHASONE
     Dosage: UNK UNK, CYCLE AS PER THE DHAC REGIMEN FOR 3 CYCLES
     Route: 065
  15. CYTARABINE [Suspect]
     Active Substance: CYTARABINE
     Indication: Hodgkin^s disease nodular sclerosis
     Dosage: UNK UNK, CYCLE AS PER THE GDC REGIMEN FOR 5 CYCLES
     Route: 065
  16. CYTARABINE [Suspect]
     Active Substance: CYTARABINE
     Dosage: UNK UNK, CYCLE AS PER THE DHAC REGIMEN FOR 3 CYCLES
     Route: 065
  17. BRENTUXIMAB VEDOTIN [Suspect]
     Active Substance: BRENTUXIMAB VEDOTIN
     Indication: Hodgkin^s disease nodular sclerosis
     Dosage: UNK
     Route: 065

REACTIONS (2)
  - Acute myeloid leukaemia [Fatal]
  - Drug ineffective [Unknown]
